FAERS Safety Report 7315427-8 (Version None)
Quarter: 2011Q1

REPORT INFORMATION
  Report Type: 
  Country: None (occurrence: None)
  Receive Date: 20110225
  Receipt Date: 20110218
  Transmission Date: 20110831
  Serious: Yes (Other)
  Sender: FDA-Public Use
  Company Number: B0696224A

PATIENT
  Sex: Male

DRUGS (20)
  1. TEGRETOL [Concomitant]
     Dosage: 750MG PER DAY
     Route: 048
     Dates: start: 20110125
  2. DEPAKENE [Concomitant]
     Route: 048
  3. MEILAX [Concomitant]
     Dosage: 4MG PER DAY
     Route: 048
  4. EXCEGRAN [Concomitant]
     Route: 048
  5. GANATON [Concomitant]
     Dosage: 150MG PER DAY
     Route: 048
     Dates: start: 20110125
  6. CHINESE MEDICINE [Concomitant]
     Dosage: 15G PER DAY
     Route: 048
     Dates: start: 20110125
  7. XYLOCAINE [Concomitant]
     Dosage: 60ML PER DAY
     Route: 061
     Dates: start: 20110125
  8. GASCON [Concomitant]
     Dosage: 120MG PER DAY
     Route: 048
     Dates: start: 20110125
  9. DIAPP [Concomitant]
     Indication: CONVULSION
     Route: 054
  10. ALLEGRA [Concomitant]
     Dosage: 120MG PER DAY
     Route: 048
     Dates: start: 20110125
  11. EXCEGRAN [Concomitant]
     Route: 048
  12. RIVOTRIL [Concomitant]
     Dosage: 3MG PER DAY
     Route: 048
     Dates: start: 20110125
  13. MYSTAN [Concomitant]
     Dosage: 9MG PER DAY
     Route: 048
     Dates: start: 20110125
  14. UNKNOWN [Concomitant]
     Dosage: 6G PER DAY
     Route: 048
     Dates: start: 20110125
  15. TELEMIN SOFT [Concomitant]
     Dosage: 10MG PER DAY
     Route: 054
     Dates: start: 20110125
  16. ALEVIATIN [Concomitant]
     Dosage: 150MG PER DAY
     Route: 048
     Dates: start: 20110125
  17. ALOSENN [Concomitant]
     Dosage: 1G PER DAY
     Route: 048
     Dates: start: 20110125
  18. CINAL [Concomitant]
     Dosage: 3G PER DAY
     Route: 048
     Dates: start: 20110125
  19. LAMICTAL [Suspect]
     Dosage: 200MG PER DAY
     Route: 048
  20. PANTOSIN [Concomitant]
     Dosage: 300MG PER DAY
     Route: 048
     Dates: start: 20110125

REACTIONS (2)
  - GAZE PALSY [None]
  - DYSTONIA [None]
